FAERS Safety Report 9388761 (Version 1)
Quarter: 2013Q3

REPORT INFORMATION
  Report Type: Spontaneous
  Country: FR (occurrence: FR)
  Receive Date: 20130708
  Receipt Date: 20130708
  Transmission Date: 20140515
  Serious: Yes (Other)
  Sender: FDA-Public Use
  Company Number: FR-VIIV HEALTHCARE LIMITED-B0905235A

PATIENT
  Age: 47 Year
  Sex: Male

DRUGS (3)
  1. COMBIVIR [Suspect]
     Indication: HIV INFECTION
     Route: 048
     Dates: start: 2003
  2. ANDRACTIM [Concomitant]
     Indication: GYNAECOMASTIA
     Route: 061
     Dates: start: 201303, end: 20130608
  3. SUSTIVA [Concomitant]
     Indication: HIV INFECTION
     Route: 048
     Dates: start: 2003

REACTIONS (1)
  - Rectal haemorrhage [Unknown]
